FAERS Safety Report 10089830 (Version 4)
Quarter: 2014Q3

REPORT INFORMATION
  Report Type: Report from Study
  Country: US (occurrence: US)
  Receive Date: 20140421
  Receipt Date: 20140805
  Transmission Date: 20150326
  Serious: Yes (Other)
  Sender: FDA-Public Use
  Company Number: US-OTSUKA-US-2013-12107

PATIENT
  Age: 38 Year
  Sex: Male

DRUGS (8)
  1. VOLTAREN [Suspect]
     Active Substance: DICLOFENAC SODIUM
     Indication: PLANTAR FASCIITIS
     Dosage: 2 G GRAM(S), UNKNOWN
     Route: 065
     Dates: start: 20131018, end: 20131028
  2. PERCOCET [Concomitant]
     Active Substance: ACETAMINOPHEN\OXYCODONE HYDROCHLORIDE
     Indication: RENAL PAIN
     Dosage: 325 MG MILLIGRAM(S), UNK
     Route: 048
     Dates: start: 2002
  3. OPC-41061 [Suspect]
     Active Substance: TOLVAPTAN
     Indication: CONGENITAL CYSTIC KIDNEY DISEASE
     Dosage: 90 MG MILLIGRAM(S), DAILY DOSE
     Route: 048
     Dates: start: 20130628, end: 20131031
  4. LISINOPRIL. [Concomitant]
     Active Substance: LISINOPRIL
     Indication: HYPERTENSION
     Dosage: 20 MG MILLIGRAM(S), UNK
     Route: 048
     Dates: start: 20130428
  5. METAMUCIL [Concomitant]
     Active Substance: PLANTAGO SEED
     Indication: SUPPLEMENTATION THERAPY
     Dosage: 3 G GRAM(S), UNK
     Route: 048
     Dates: start: 201309, end: 20131104
  6. PANTOPRAZOLE SODIUM [Concomitant]
     Active Substance: PANTOPRAZOLE SODIUM
     Indication: GASTROOESOPHAGEAL REFLUX DISEASE
     Dosage: 40 MG MILLIGRAM(S), UNK
     Route: 048
     Dates: start: 2010
  7. FISH OIL [Concomitant]
     Active Substance: FISH OIL
     Indication: SUPPLEMENTATION THERAPY
     Dosage: 1200 MG MILLIGRAM(S), UNK
     Route: 048
     Dates: start: 201303, end: 201306
  8. METAMUCIL [Concomitant]
     Active Substance: PLANTAGO SEED
     Dosage: 3 G GRAM(S), UNK
     Dates: start: 201311

REACTIONS (4)
  - Oedema peripheral [Recovered/Resolved]
  - Aspartate aminotransferase increased [Recovered/Resolved]
  - Blood creatine phosphokinase increased [Recovered/Resolved]
  - Alanine aminotransferase increased [Recovered/Resolved]

NARRATIVE: CASE EVENT DATE: 20131029
